FAERS Safety Report 8337580-X (Version None)
Quarter: 2012Q2

REPORT INFORMATION
  Report Type: 
  Country: None (occurrence: None)
  Receive Date: 20120504
  Receipt Date: 20110906
  Transmission Date: 20120825
  Serious: No
  Sender: FDA-Public Use
  Company Number: US-TEVA-2011004723

PATIENT
  Age: 65 Year
  Sex: Male

DRUGS (3)
  1. BENZODIAZEPINE [Concomitant]
  2. BOTOX [Concomitant]
  3. NUVIGIL [Suspect]
     Indication: SEDATION
     Dosage: 250 MILLIGRAM;
     Route: 048

REACTIONS (1)
  - RASH GENERALISED [None]
